FAERS Safety Report 4390450-4 (Version None)
Quarter: 2004Q2

REPORT INFORMATION
  Report Type: 
  Country: None (occurrence: None)
  Receive Date: 20040630
  Receipt Date: 20040624
  Transmission Date: 20050107
  Serious: No
  Sender: FDA-Public Use
  Company Number: 2003-110355-NL

PATIENT
  Age: 17 Year
  Sex: Female

DRUGS (1)
  1. NUVARING [Suspect]
     Indication: CONTRACEPTION
     Dosage: DF; VAGINAL
     Route: 067
     Dates: start: 20030301, end: 20031104

REACTIONS (13)
  - ASTHENIA [None]
  - COAGULOPATHY [None]
  - FATIGUE [None]
  - HEADACHE [None]
  - INJURY [None]
  - NECK PAIN [None]
  - PLEURAL EFFUSION [None]
  - RENAL FAILURE [None]
  - SEPSIS [None]
  - SHOCK [None]
  - THROMBOCYTOPENIA [None]
  - TOXIC SHOCK SYNDROME [None]
  - WITHDRAWAL BLEED [None]
